FAERS Safety Report 5577321-2 (Version None)
Quarter: 2007Q4

REPORT INFORMATION
  Report Type: 
  Country: None (occurrence: None)
  Receive Date: 20071228
  Receipt Date: 20071219
  Transmission Date: 20080405
  Serious: Yes (Other)
  Sender: FDA-Public Use
  Company Number: FR-PFIZER INC-2007102019

PATIENT
  Sex: Female

DRUGS (1)
  1. CELEBREX [Suspect]
     Dates: start: 20070101, end: 20070101

REACTIONS (1)
  - NIGHTMARE [None]
